FAERS Safety Report 16750305 (Version 3)
Quarter: 2020Q1

REPORT INFORMATION
  Report Type: Spontaneous
  Country: CA (occurrence: CA)
  Receive Date: 20190828
  Receipt Date: 20200224
  Transmission Date: 20200409
  Serious: Yes (Other)
  Sender: FDA-Public Use
  Company Number: CA-TEVA-2019-CA-1097901

PATIENT
  Age: 76 Year
  Sex: Male

DRUGS (11)
  1. ASACOL [Suspect]
     Active Substance: MESALAMINE
     Indication: COLITIS ULCERATIVE
     Route: 065
  2. PROBIOTICS [Concomitant]
     Active Substance: PROBIOTICS NOS
     Indication: PRODUCT USED FOR UNKNOWN INDICATION
  3. MESALAZINE [Suspect]
     Active Substance: MESALAMINE
     Route: 065
  4. SALOFALK [Concomitant]
  5. PREDNISONE. [Suspect]
     Active Substance: PREDNISONE
     Indication: COLITIS ULCERATIVE
     Route: 065
  6. MESALAZINE [Suspect]
     Active Substance: MESALAMINE
     Indication: COLITIS ULCERATIVE
     Route: 065
  7. PARA-AMINOSALICYLIC ACID [Concomitant]
     Active Substance: AMINOSALICYLIC ACID
     Indication: PRODUCT USED FOR UNKNOWN INDICATION
  8. VITAMINS NOS [Concomitant]
     Active Substance: VITAMINS
     Indication: PRODUCT USED FOR UNKNOWN INDICATION
  9. MULTIVITAMINS [Concomitant]
     Active Substance: VITAMINS
  10. CORTIFOAM [Suspect]
     Active Substance: HYDROCORTISONE ACETATE
     Indication: COLITIS ULCERATIVE
     Route: 065
  11. ASACOL [Suspect]
     Active Substance: MESALAMINE
     Indication: COLITIS ULCERATIVE
     Route: 065

REACTIONS (3)
  - Diarrhoea [Recovering/Resolving]
  - Clostridium difficile colitis [Recovering/Resolving]
  - Therapeutic product effect incomplete [Recovering/Resolving]
